FAERS Safety Report 11583483 (Version 1)
Quarter: 2015Q3

REPORT INFORMATION
  Report Type: Spontaneous
  Country: US (occurrence: None)
  Receive Date: 20150930
  Receipt Date: 20150930
  Transmission Date: 20151125
  Serious: No
  Sender: FDA-Public Use
  Company Number: None

PATIENT
  Age: 53 Year
  Sex: Female

DRUGS (9)
  1. METHYLPHENIDATE. [Concomitant]
     Active Substance: METHYLPHENIDATE
  2. CARBAMAZEPINE. [Concomitant]
     Active Substance: CARBAMAZEPINE
  3. PAROXTEINE [Concomitant]
  4. VESICARE [Concomitant]
     Active Substance: SOLIFENACIN SUCCINATE
  5. BACLOFEN. [Concomitant]
     Active Substance: BACLOFEN
  6. SIMVASTATIN. [Concomitant]
     Active Substance: SIMVASTATIN
  7. LISINOPRIL. [Concomitant]
     Active Substance: LISINOPRIL
  8. AVONEX [Suspect]
     Active Substance: INTERFERON BETA-1A
     Indication: MULTIPLE SCLEROSIS
     Dosage: 1 PEN ONCE WEEKLY
     Route: 030
     Dates: start: 20150427
  9. NITROFURANTOIN. [Concomitant]
     Active Substance: NITROFURANTOIN

REACTIONS (2)
  - Influenza like illness [None]
  - Myalgia [None]

NARRATIVE: CASE EVENT DATE: 20150928
